FAERS Safety Report 7563309-9 (Version None)
Quarter: 2011Q2

REPORT INFORMATION
  Report Type: 
  Country: None (occurrence: None)
  Receive Date: 20110622
  Receipt Date: 20110603
  Transmission Date: 20111010
  Serious: Yes (Hospitalization)
  Sender: FDA-Public Use
  Company Number: A0869065A

PATIENT
  Sex: Male
  Weight: 109.1 kg

DRUGS (8)
  1. AVANDIA [Suspect]
     Dosage: 4MG PER DAY
     Route: 048
  2. PROPRANOLOL [Concomitant]
  3. VYTORIN [Concomitant]
  4. ALTACE [Concomitant]
  5. NEXIUM [Concomitant]
  6. METFORMIN HCL [Concomitant]
  7. CLONAZEPAM [Concomitant]
  8. REQUIP [Concomitant]

REACTIONS (3)
  - CARDIAC FAILURE CONGESTIVE [None]
  - ANGINA UNSTABLE [None]
  - CORONARY ARTERY DISEASE [None]
